FAERS Safety Report 20446237 (Version 1)
Quarter: 2022Q1

REPORT INFORMATION
  Report Type: Spontaneous
  Country: US (occurrence: US)
  Receive Date: 20220208
  Receipt Date: 20220208
  Transmission Date: 20220423
  Serious: No
  Sender: FDA-Public Use
  Company Number: US-UPSHER-SMITH LABORATORIES, LLC-2022USL00029

PATIENT

DRUGS (1)
  1. TOSYMRA [Suspect]
     Active Substance: SUMATRIPTAN

REACTIONS (2)
  - Nasal discomfort [Unknown]
  - Unevaluable event [Unknown]
